FAERS Safety Report 7316036-7 (Version None)
Quarter: 2011Q1

REPORT INFORMATION
  Report Type: 
  Country: None (occurrence: None)
  Receive Date: 20110225
  Receipt Date: 20110218
  Transmission Date: 20110831
  Serious: Yes (Death)
  Sender: FDA-Public Use
  Company Number: PHHY2010US62861

PATIENT
  Sex: Female

DRUGS (2)
  1. METHADONE [Concomitant]
     Indication: PAIN
     Dosage: 10 MG, UNK
     Dates: start: 20090610
  2. TASIGNA [Suspect]
     Indication: GASTROINTESTINAL STROMAL TUMOUR
     Dosage: 400 MG, BID
     Route: 048
     Dates: end: 20100913

REACTIONS (3)
  - DRUG INEFFECTIVE [None]
  - GASTROINTESTINAL STROMAL TUMOUR [None]
  - NEOPLASM MALIGNANT [None]
